FAERS Safety Report 10228479 (Version 3)
Quarter: 2014Q3

REPORT INFORMATION
  Report Type: Spontaneous
  Country: US (occurrence: US)
  Receive Date: 20140610
  Receipt Date: 20140903
  Transmission Date: 20150326
  Serious: Yes (Hospitalization)
  Sender: FDA-Public Use
  Company Number: US-BAYER-2014-084592

PATIENT
  Age: 25 Year
  Sex: Female

DRUGS (4)
  1. FLUCONAZOLE. [Concomitant]
     Active Substance: FLUCONAZOLE
     Dosage: 150 MG, UNK
     Route: 048
     Dates: start: 20090813
  2. YASMIN [Suspect]
     Active Substance: DROSPIRENONE\ETHINYL ESTRADIOL
  3. METRONIDAZOLE. [Concomitant]
     Active Substance: METRONIDAZOLE
     Dosage: 500 MG, UNK
     Route: 048
     Dates: start: 20090813
  4. PROMETHAZINE [Concomitant]
     Active Substance: PROMETHAZINE\PROMETHAZINE HYDROCHLORIDE
     Dosage: 25 MG, UNK
     Route: 048
     Dates: start: 20090804

REACTIONS (7)
  - Injury [Recovered/Resolved]
  - General physical health deterioration [Recovered/Resolved]
  - Pain [Recovered/Resolved]
  - Pain [None]
  - Pulmonary embolism [Recovered/Resolved]
  - Mental disorder [None]
  - Emotional distress [None]

NARRATIVE: CASE EVENT DATE: 200901
